FAERS Safety Report 7420506-0 (Version None)
Quarter: 2011Q2

REPORT INFORMATION
  Report Type: 
  Country: None (occurrence: None)
  Receive Date: 20110418
  Receipt Date: 20110415
  Transmission Date: 20111010
  Serious: Yes (Hospitalization)
  Sender: FDA-Public Use
  Company Number: US-PFIZER INC-2011083613

PATIENT
  Sex: Female
  Weight: 77.098 kg

DRUGS (7)
  1. CLONAZEPAM [Concomitant]
     Dosage: 0.5 MG, 2X/DAY
     Route: 048
  2. GEODON [Suspect]
     Dosage: 60 MG, UNK
  3. GEODON [Suspect]
     Dosage: 80 MG, UNK
     Dates: end: 20110304
  4. GEODON [Suspect]
     Dosage: 20 MG, UNK
     Route: 048
  5. GEODON [Suspect]
     Dosage: 40 MG, UNK
  6. LAMICTAL [Concomitant]
     Indication: CONVULSION
     Dosage: 100 MG, 2X/DAY
     Route: 048
  7. PAXIL [Concomitant]
     Indication: OBSESSIVE-COMPULSIVE DISORDER
     Dosage: UNK
     Route: 048

REACTIONS (1)
  - DYSTONIA [None]
